FAERS Safety Report 26023413 (Version 3)
Quarter: 2025Q4

REPORT INFORMATION
  Report Type: Report from Study
  Country: CA (occurrence: CA)
  Receive Date: 20251110
  Receipt Date: 20251116
  Transmission Date: 20260117
  Serious: Yes (Hospitalization, Other)
  Sender: HLS THERAPEUTICS
  Company Number: CA-HLS-202502994

PATIENT
  Age: 38 Year
  Sex: Female

DRUGS (1)
  1. CLOZARIL [Suspect]
     Active Substance: CLOZAPINE
     Indication: Schizophrenia
     Route: 048
     Dates: start: 20251016, end: 20251104

REACTIONS (7)
  - Headache [Unknown]
  - Hypotension [Unknown]
  - Mitral valve incompetence [Unknown]
  - Myocarditis [Unknown]
  - Pulmonary valve incompetence [Unknown]
  - Tricuspid valve incompetence [Unknown]
  - Upper respiratory tract infection [Unknown]
